FAERS Safety Report 7409963-3 (Version None)
Quarter: 2011Q2

REPORT INFORMATION
  Report Type: 
  Country: None (occurrence: None)
  Receive Date: 20110412
  Receipt Date: 20110325
  Transmission Date: 20111010
  Serious: Yes (Other)
  Sender: FDA-Public Use
  Company Number: PHHY2011JP03443

PATIENT
  Age: 38 Year
  Sex: Male

DRUGS (3)
  1. FASTIC [Suspect]
     Dosage: 180 MG, QD
     Route: 048
     Dates: start: 20101004, end: 20101226
  2. METFORMIN HCL [Concomitant]
     Indication: TYPE 2 DIABETES MELLITUS
     Dosage: 500 MG, QD
     Dates: start: 20081204
  3. ACTOS [Concomitant]
     Dosage: 30 MG, QD
     Dates: start: 20090217

REACTIONS (3)
  - LIVER DISORDER [None]
  - GLYCOSYLATED HAEMOGLOBIN INCREASED [None]
  - BLOOD GLUCOSE INCREASED [None]
